FAERS Safety Report 7802606-6 (Version None)
Quarter: 2011Q4

REPORT INFORMATION
  Report Type: 
  Country: None (occurrence: None)
  Receive Date: 20111007
  Receipt Date: 20110928
  Transmission Date: 20120403
  Serious: Yes (Hospitalization)
  Sender: FDA-Public Use
  Company Number: JP-EISAI INC-E7389-01506-CLI-JP

PATIENT
  Sex: Female
  Weight: 40 kg

DRUGS (21)
  1. HALAVEN [Suspect]
     Indication: METASTASES TO LUNG
  2. HALAVEN [Suspect]
     Indication: METASTASES TO BONE
  3. MEDROXYPROGESTERONE ACETATE [Concomitant]
     Indication: BREAST CANCER RECURRENT
     Dates: start: 20100603
  4. PHENYTOIN SODIUM CAP [Concomitant]
     Indication: PROPHYLAXIS
     Route: 048
  5. DECADRON [Concomitant]
     Indication: PROPHYLAXIS
  6. FAMOTIDINE [Concomitant]
     Indication: PROPHYLAXIS
  7. NEOPHAGEN [Concomitant]
     Indication: PROPHYLAXIS
  8. PRECOAT [Concomitant]
     Route: 048
  9. FUROSEMIDE [Concomitant]
  10. CELESTAMINE TAB [Concomitant]
     Indication: PROPHYLAXIS
     Route: 048
  11. LANSOPRAZOLE [Concomitant]
     Indication: PROPHYLAXIS
     Route: 048
  12. AZUNOL [Concomitant]
     Indication: PROPHYLAXIS
  13. HALAVEN [Suspect]
  14. MEDROXYPROGESTERONE ACETATE [Concomitant]
  15. ELIETEN [Concomitant]
     Indication: PROPHYLAXIS
     Route: 048
  16. PACIF [Concomitant]
     Route: 048
  17. GLYCEOL [Concomitant]
  18. GRANISETRON [Concomitant]
     Indication: PROPHYLAXIS
  19. HALAVEN [Suspect]
     Indication: BREAST CANCER RECURRENT
     Route: 041
     Dates: start: 20110804
  20. HALAVEN [Suspect]
     Indication: METASTASES TO LIVER
  21. ZOMETA [Concomitant]
     Indication: METASTASES TO BONE

REACTIONS (3)
  - LEUKOPENIA [None]
  - PNEUMONIA [None]
  - NEUTROPENIA [None]
